FAERS Safety Report 7731398-4 (Version None)
Quarter: 2011Q3

REPORT INFORMATION
  Report Type: 
  Country: None (occurrence: None)
  Receive Date: 20110906
  Receipt Date: 20110901
  Transmission Date: 20111222
  Serious: Yes (Death, Other)
  Sender: FDA-Public Use
  Company Number: DK-PFIZER INC-2011106194

PATIENT
  Age: 39 Year
  Sex: Male
  Weight: 97 kg

DRUGS (6)
  1. LYRICA [Suspect]
     Indication: DEPRESSION
     Dosage: UNK
     Route: 048
     Dates: start: 20101201
  2. DIAZEPAM [Concomitant]
     Dosage: UNK
  3. MORPHINE [Concomitant]
     Dosage: UNK
  4. OXAZEPAM [Suspect]
     Dosage: UNK
     Route: 048
     Dates: start: 20060101, end: 20101101
  5. ZYPREXA [Suspect]
     Indication: DEPRESSION SUICIDAL
     Dosage: 20 MG, 2X/DAY
     Route: 048
     Dates: start: 20101122
  6. VENLAFAXINE [Concomitant]
     Dosage: UNK

REACTIONS (1)
  - EOSINOPHILIC MYOCARDITIS [None]
